FAERS Safety Report 25999956 (Version 1)
Quarter: 2025Q4

REPORT INFORMATION
  Report Type: Spontaneous
  Country: US (occurrence: US)
  Receive Date: 20251105
  Receipt Date: 20251105
  Transmission Date: 20260118
  Serious: Yes (Hospitalization, Other)
  Sender: APOTEX
  Company Number: US-APOTEX-2025AP031987

PATIENT
  Age: 67 Year
  Sex: Female

DRUGS (1)
  1. CITALOPRAM [Suspect]
     Active Substance: CITALOPRAM
     Indication: Product used for unknown indication
     Dosage: 3600 MILLIGRAM (ESTIMATED 90 DAYS SUPPLY))
     Route: 065

REACTIONS (10)
  - Cardiogenic shock [Recovered/Resolved]
  - Seizure [Recovered/Resolved]
  - Vasoplegia syndrome [Recovered/Resolved]
  - Hypotension [Recovered/Resolved]
  - Nodal arrhythmia [Recovered/Resolved]
  - Ejection fraction decreased [Recovered/Resolved]
  - Overdose [Recovered/Resolved]
  - Suicide attempt [Recovered/Resolved]
  - Suicidal ideation [Recovered/Resolved]
  - Acute kidney injury [Recovered/Resolved]
